FAERS Safety Report 14141122 (Version 1)
Quarter: 2017Q4

REPORT INFORMATION
  Report Type: Spontaneous
  Country: US (occurrence: US)
  Receive Date: 20171030
  Receipt Date: 20171030
  Transmission Date: 20180321
  Serious: Yes (Other)
  Sender: FDA-Public Use
  Company Number: US-BAYER-2017-200626

PATIENT
  Age: 37 Year
  Sex: Female

DRUGS (3)
  1. HUMIRA [Suspect]
     Active Substance: ADALIMUMAB
     Indication: COLITIS ULCERATIVE
  2. MIRENA [Suspect]
     Active Substance: LEVONORGESTREL
     Indication: CONTRACEPTION
     Dosage: 20 MCG/24HR, CONT
     Route: 015
  3. HUMIRA [Suspect]
     Active Substance: ADALIMUMAB
     Indication: CROHN^S DISEASE
     Dosage: 40 MG, Q2WK
     Route: 058
     Dates: start: 2015

REACTIONS (18)
  - Secretion discharge [None]
  - Eye disorder [None]
  - Demyelination [None]
  - Anxiety [None]
  - Condition aggravated [None]
  - Keratitis [None]
  - Photosensitivity reaction [None]
  - Eye infection [None]
  - Optic neuritis [None]
  - Immunosuppression [None]
  - Colitis ulcerative [None]
  - Multiple allergies [None]
  - Impaired driving ability [None]
  - Hypertension [None]
  - Fungal skin infection [None]
  - Eye discharge [None]
  - Fistula [None]
  - Nystagmus [None]

NARRATIVE: CASE EVENT DATE: 2017
